FAERS Safety Report 5040770-5 (Version None)
Quarter: 2006Q2

REPORT INFORMATION
  Report Type: 
  Country: None (occurrence: None)
  Receive Date: 20060630
  Receipt Date: 20060630
  Transmission Date: 20061013
  Serious: Yes (Death)
  Sender: FDA-Public Use
  Company Number: None

PATIENT
  Age: 58 Year
  Sex: Male
  Weight: 78.064 kg

DRUGS (15)
  1. TAXOTERE [Suspect]
     Indication: LUNG NEOPLASM MALIGNANT
     Dosage: 30MG/M2    55.2 MG   WEEKLY X 3 WEEKS  IV
     Route: 042
     Dates: start: 20060615, end: 20060615
  2. GLEEVEC [Suspect]
     Indication: LUNG NEOPLASM MALIGNANT
     Dosage: 600 MG   DAILY   PO
     Route: 048
     Dates: start: 20060615, end: 20060628
  3. ACETYLCYSTEINE [Concomitant]
  4. ALBUTEROL / IPRATROP [Concomitant]
  5. CITALOPRAM HYDROBROMIDE [Concomitant]
  6. CODEINE PHOSPHATE AND ACETAMINOPHEN [Concomitant]
  7. FINASTERIDE [Concomitant]
  8. FLUNISOLIDE [Concomitant]
  9. FUROSEMIDE [Concomitant]
  10. METOPROLOL TARTRATE [Concomitant]
  11. NITROGLYCERIN [Concomitant]
  12. ONDANSETRON HCL [Concomitant]
  13. RANITIDINE HCL [Concomitant]
  14. SIMVASTATIN [Concomitant]
  15. TERAZOSIN HCL [Concomitant]

REACTIONS (8)
  - BLOOD BILIRUBIN INCREASED [None]
  - BLOOD CALCIUM DECREASED [None]
  - BLOOD CREATININE INCREASED [None]
  - BLOOD SODIUM DECREASED [None]
  - DYSPNOEA [None]
  - HAEMOGLOBIN DECREASED [None]
  - OEDEMA PERIPHERAL [None]
  - WHITE BLOOD CELL COUNT DECREASED [None]
